FAERS Safety Report 18765953 (Version 7)
Quarter: 2024Q4

REPORT INFORMATION
  Report Type: Report from Study
  Country: BR (occurrence: BR)
  Receive Date: 20210120
  Receipt Date: 20241227
  Transmission Date: 20250114
  Serious: Yes (Other)
  Sender: CELLTRION
  Company Number: BR-CELLTRION INC.-2021BR000436

PATIENT

DRUGS (22)
  1. INFLIXIMAB-DYYB [Suspect]
     Active Substance: INFLIXIMAB-DYYB
     Indication: Colitis ulcerative
     Dosage: 2 FLASK (EVERY FLASK WITH 100MG) EVERY 2 MONTHS
     Route: 042
     Dates: start: 20181003
  2. INFLIXIMAB-DYYB [Suspect]
     Active Substance: INFLIXIMAB-DYYB
     Dosage: 2 FLASK (EVERY FLASK WITH 100MG) EVERY 2 MONTHS
     Route: 042
     Dates: start: 20181020
  3. INFLIXIMAB-DYYB [Suspect]
     Active Substance: INFLIXIMAB-DYYB
     Dosage: 2 FLASK (EVERY FLASK WITH 100MG) EVERY 2 MONTHS
     Route: 042
     Dates: start: 20181029
  4. INFLIXIMAB-DYYB [Suspect]
     Active Substance: INFLIXIMAB-DYYB
     Dosage: 2 FLASK (EVERY FLASK WITH 100MG) EVERY 2 MONTHS
     Route: 042
     Dates: start: 20181221
  5. INFLIXIMAB-DYYB [Suspect]
     Active Substance: INFLIXIMAB-DYYB
     Dosage: 2 FLASK (EVERY FLASK WITH 100MG) EVERY 2 MONTHS
     Route: 042
     Dates: start: 20190215
  6. INFLIXIMAB-DYYB [Suspect]
     Active Substance: INFLIXIMAB-DYYB
     Dosage: 2 FLASK (EVERY FLASK WITH 100MG) EVERY 2 MONTHS
     Route: 042
     Dates: start: 20190413
  7. INFLIXIMAB-DYYB [Suspect]
     Active Substance: INFLIXIMAB-DYYB
     Dosage: 2 FLASK (EVERY FLASK WITH 100MG) EVERY 2 MONTHS
     Route: 042
     Dates: start: 20190608
  8. INFLIXIMAB-DYYB [Suspect]
     Active Substance: INFLIXIMAB-DYYB
     Dosage: 2 FLASK (EVERY FLASK WITH 100MG) EVERY 2 MONTHS
     Route: 042
     Dates: start: 20190905
  9. INFLIXIMAB-DYYB [Suspect]
     Active Substance: INFLIXIMAB-DYYB
     Dosage: 2 FLASK (EVERY FLASK WITH 100MG) EVERY 2 MONTHS
     Route: 042
     Dates: start: 20191009
  10. INFLIXIMAB-DYYB [Suspect]
     Active Substance: INFLIXIMAB-DYYB
     Dosage: 2 FLASK (EVERY FLASK WITH 100MG) EVERY 2 MONTHS
     Route: 042
     Dates: start: 20191211
  11. INFLIXIMAB-DYYB [Suspect]
     Active Substance: INFLIXIMAB-DYYB
     Dosage: 2 FLASK (EVERY FLASK WITH 100MG) EVERY 2 MONTHS
     Route: 042
     Dates: start: 20200110
  12. INFLIXIMAB-DYYB [Suspect]
     Active Substance: INFLIXIMAB-DYYB
     Dosage: 2 FLASK (EVERY FLASK WITH 100MG) EVERY 2 MONTHS
     Route: 042
     Dates: start: 20200203
  13. INFLIXIMAB-DYYB [Suspect]
     Active Substance: INFLIXIMAB-DYYB
     Dosage: 2 FLASK (EVERY FLASK WITH 100MG) EVERY 2 MONTHS
     Route: 042
     Dates: start: 20200529
  14. INFLIXIMAB-DYYB [Suspect]
     Active Substance: INFLIXIMAB-DYYB
     Dosage: 2 FLASK (EVERY FLASK WITH 100MG) EVERY 2 MONTHS
     Route: 042
     Dates: start: 20200724
  15. INFLIXIMAB-DYYB [Suspect]
     Active Substance: INFLIXIMAB-DYYB
     Dosage: 2 FLASK (EVERY FLASK WITH 100MG) EVERY 2 MONTHS
     Route: 042
     Dates: start: 20200918
  16. INFLIXIMAB-DYYB [Suspect]
     Active Substance: INFLIXIMAB-DYYB
     Dosage: 2 FLASK (EVERY FLASK WITH 100MG) EVERY 2 MONTHS
     Route: 042
     Dates: start: 20201113
  17. INFLIXIMAB-DYYB [Suspect]
     Active Substance: INFLIXIMAB-DYYB
     Dosage: 2 FLASK (EVERY FLASK WITH 100MG) EVERY 2 MONTHS
     Route: 042
     Dates: start: 20210305
  18. REMICADE [Suspect]
     Active Substance: INFLIXIMAB
     Indication: Colitis ulcerative
     Dosage: UNK
     Dates: start: 20210108
  19. SULFASALAZINE [Concomitant]
     Active Substance: SULFASALAZINE
     Indication: Product used for unknown indication
     Dosage: 5 TABLETS A DAY
     Route: 048
  20. AZATHIOPRINE [Concomitant]
     Active Substance: AZATHIOPRINE
     Indication: Product used for unknown indication
     Dosage: 2 TABLETS A DAY
     Route: 048
  21. FOLIC ACID [Concomitant]
     Active Substance: FOLIC ACID
     Indication: Product used for unknown indication
     Dosage: 1 TABLET
     Route: 048
  22. CALCIUM CARBONATE [Concomitant]
     Active Substance: CALCIUM CARBONATE
     Indication: Product used for unknown indication
     Dosage: 1 TABLET A DAY
     Route: 048

REACTIONS (6)
  - Colitis ulcerative [Not Recovered/Not Resolved]
  - Arrhythmia [Unknown]
  - Influenza [Unknown]
  - Overdose [Unknown]
  - Product use issue [Unknown]
  - Intentional dose omission [Unknown]

NARRATIVE: CASE EVENT DATE: 20201001
